FAERS Safety Report 4349301-6 (Version None)
Quarter: 2004Q2

REPORT INFORMATION
  Report Type: 
  Country: None (occurrence: None)
  Receive Date: 20040428
  Receipt Date: 20020715
  Transmission Date: 20050107
  Serious: Yes (Hospitalization)
  Sender: FDA-Public Use
  Company Number: US-BRISTOL-MYERS SQUIBB COMPANY-11951878

PATIENT
  Age: 43 Year
  Sex: Male

DRUGS (5)
  1. BMS224818 [Concomitant]
     Dosage: THIRD COURSE OF TREATMENT REALLOCATION DATE:  30-SEP-2002
     Route: 042
     Dates: start: 20020629
  2. MYCOPHENOLATE MOFETIL [Suspect]
     Dates: start: 20020629
  3. PREDNISONE [Suspect]
     Dates: start: 20020629
  4. RANITIDINE [Concomitant]
     Dates: start: 20020630
  5. AMLODIPINE [Concomitant]
     Dates: start: 20020709

REACTIONS (1)
  - KIDNEY TRANSPLANT REJECTION [None]
